FAERS Safety Report 10267724 (Version 6)
Quarter: 2016Q1

REPORT INFORMATION
  Report Type: Report from Study
  Country: US (occurrence: US)
  Receive Date: 20140630
  Receipt Date: 20160226
  Transmission Date: 20160525
  Serious: Yes (Death, Other)
  Sender: FDA-Public Use
  Company Number: US-SA-2014SA081256

PATIENT
  Age: 67 Year
  Sex: Male

DRUGS (9)
  1. CEREZYME [Suspect]
     Active Substance: IMIGLUCERASE
     Indication: GAUCHER^S DISEASE
     Dosage: DOSE:60 UNIT(S)/KILOGRAM BODYWEIGHT
     Route: 042
     Dates: start: 19910604
  2. CEREZYME [Suspect]
     Active Substance: IMIGLUCERASE
     Indication: GAUCHER^S DISEASE
     Dosage: DOSE:6000 UNIT(S)
     Route: 042
     Dates: end: 2014
  3. VELCADE [Concomitant]
     Active Substance: BORTEZOMIB
     Indication: PLASMA CELL MYELOMA
     Route: 058
     Dates: start: 201210
  4. CEREZYME [Suspect]
     Active Substance: IMIGLUCERASE
     Indication: GAUCHER^S DISEASE
     Dosage: UNTESTED DRUG, INTENTIONALLY MISLABELED,CONTAMINIATED
     Route: 042
     Dates: start: 200907, end: 201109
  5. REVLIMID [Concomitant]
     Active Substance: LENALIDOMIDE
     Indication: PLASMA CELL MYELOMA
     Route: 048
     Dates: start: 201210
  6. BENADRYL [Concomitant]
     Active Substance: DIPHENHYDRAMINE HYDROCHLORIDE
     Route: 042
  7. HYTRIN [Concomitant]
     Active Substance: TERAZOSIN HYDROCHLORIDE
     Indication: BENIGN PROSTATIC HYPERPLASIA
  8. OMEPRAZOLE. [Concomitant]
     Active Substance: OMEPRAZOLE
     Indication: GASTROOESOPHAGEAL REFLUX DISEASE
  9. VASOTEC [Concomitant]
     Active Substance: ENALAPRIL MALEATE
     Indication: HYPERTENSION

REACTIONS (16)
  - Vision blurred [Unknown]
  - Bone pain [Unknown]
  - Abasia [Unknown]
  - Blood pressure increased [Unknown]
  - Visual acuity reduced [Recovered/Resolved]
  - Death [Fatal]
  - Hypoaesthesia [Unknown]
  - Migraine [Recovered/Resolved]
  - Headache [Recovered/Resolved]
  - Muscular weakness [Recovered/Resolved]
  - Plasma cell myeloma [Not Recovered/Not Resolved]
  - Speech disorder [Unknown]
  - Skin lesion [Unknown]
  - Product contamination [Unknown]
  - Pain [Unknown]
  - Drug administration error [Unknown]

NARRATIVE: CASE EVENT DATE: 20130315
